FAERS Safety Report 5654612-8 (Version None)
Quarter: 2008Q1

REPORT INFORMATION
  Report Type: 
  Country: None (occurrence: None)
  Receive Date: 20080307
  Receipt Date: 20080227
  Transmission Date: 20080703
  Serious: Yes (Other)
  Sender: FDA-Public Use
  Company Number: US-JNJFOC-20070904486

PATIENT
  Sex: Male

DRUGS (2)
  1. REMICADE [Suspect]
     Dosage: RENCENTLY HAD TWO INFUSIONS (WEEK 0, 2) ON UNSPECIFIED DATES.
     Route: 042
  2. REMICADE [Suspect]
     Indication: PSORIATIC ARTHROPATHY
     Dosage: OVER A YEAR AGO; TWO INFUSIONS (WEEK 0, 2) ON UNSPECIFIED DATES.
     Route: 042

REACTIONS (4)
  - DEMYELINATION [None]
  - MEMORY IMPAIRMENT [None]
  - MENTAL STATUS CHANGES [None]
  - PARANOIA [None]
